FAERS Safety Report 5454923-5 (Version None)
Quarter: 2007Q3

REPORT INFORMATION
  Report Type: 
  Country: None (occurrence: None)
  Receive Date: 20070917
  Receipt Date: 20070423
  Transmission Date: 20080115
  Serious: No
  Sender: FDA-Public Use
  Company Number: US-ASTRAZENECA-2006UW20392

PATIENT
  Age: 67 Year
  Sex: Female
  Weight: 54.4 kg

DRUGS (7)
  1. SEROQUEL [Suspect]
     Indication: MUSCLE SPASMS
     Route: 048
     Dates: start: 20040101
  2. SEROQUEL [Suspect]
     Indication: HALLUCINATION
     Route: 048
     Dates: start: 20040101
  3. SEROQUEL [Suspect]
     Indication: ILL-DEFINED DISORDER
     Route: 048
     Dates: start: 20040101
  4. TRAZODONE HCL [Concomitant]
  5. TRAZODONE HCL [Concomitant]
  6. THORAZINE [Concomitant]
     Dates: start: 19890101
  7. LITHIUM [Concomitant]
     Dates: start: 19890101

REACTIONS (11)
  - CHILLS [None]
  - COUGH [None]
  - DYSPHONIA [None]
  - FEELING HOT [None]
  - ILL-DEFINED DISORDER [None]
  - MANIA [None]
  - PAIN [None]
  - PHARYNGITIS [None]
  - SWELLING FACE [None]
  - TEMPERATURE REGULATION DISORDER [None]
  - WEIGHT DECREASED [None]
